FAERS Safety Report 8284234-4 (Version None)
Quarter: 2012Q2

REPORT INFORMATION
  Report Type: 
  Country: None (occurrence: None)
  Receive Date: 20120413
  Receipt Date: 20111011
  Transmission Date: 20120825
  Serious: No
  Sender: FDA-Public Use
  Company Number: US-ASTRAZENECA-2011SE61021

PATIENT
  Age: 87 Year
  Sex: Male
  Weight: 63.5 kg

DRUGS (2)
  1. PRINDLE [Concomitant]
     Indication: BLOOD ETHANAL INCREASED
  2. NEXIUM [Suspect]
     Indication: GASTROOESOPHAGEAL REFLUX DISEASE
     Route: 048
     Dates: start: 20111005

REACTIONS (2)
  - BURNING SENSATION [None]
  - INAPPROPRIATE SCHEDULE OF DRUG ADMINISTRATION [None]
